FAERS Safety Report 25593424 (Version 1)
Quarter: 2025Q3

REPORT INFORMATION
  Report Type: Spontaneous
  Country: US (occurrence: US)
  Receive Date: 20250722
  Receipt Date: 20250722
  Transmission Date: 20251021
  Serious: Yes (Other)
  Sender: MERCK SHARP & DOHME LLC
  Company Number: US-009507513-2310242

PATIENT
  Age: 60 Year
  Sex: Female

DRUGS (2)
  1. PEMBROLIZUMAB [Suspect]
     Active Substance: PEMBROLIZUMAB
     Indication: Endometrial cancer metastatic
  2. LENVATINIB [Concomitant]
     Active Substance: LENVATINIB
     Indication: Endometrial cancer metastatic

REACTIONS (3)
  - Small intestinal obstruction [Unknown]
  - Colitis [Unknown]
  - Intestinal perforation [Unknown]
